FAERS Safety Report 20607158 (Version 2)
Quarter: 2022Q2

REPORT INFORMATION
  Report Type: Spontaneous
  Country: US (occurrence: US)
  Receive Date: 20220317
  Receipt Date: 20220404
  Transmission Date: 20220720
  Serious: No
  Sender: FDA-Public Use
  Company Number: US-MYLANLABS-2022M1020558

PATIENT
  Sex: Male

DRUGS (1)
  1. DIMETHYL FUMARATE [Suspect]
     Active Substance: DIMETHYL FUMARATE
     Indication: Product used for unknown indication
     Dosage: UNK
     Route: 048

REACTIONS (1)
  - Drug ineffective [Unknown]
